FAERS Safety Report 7389467-7 (Version None)
Quarter: 2011Q2

REPORT INFORMATION
  Report Type: 
  Country: None (occurrence: None)
  Receive Date: 20110401
  Receipt Date: 20110330
  Transmission Date: 20111010
  Serious: Yes (Death)
  Sender: FDA-Public Use
  Company Number: GH-BRISTOL-MYERS SQUIBB COMPANY-15645914

PATIENT
  Age: 31 Year
  Sex: Female

DRUGS (3)
  1. EFAVIRENZ [Suspect]
     Indication: HIV INFECTION
  2. DIDANOSINE [Suspect]
     Indication: HIV INFECTION
  3. LAMIVUDINE [Suspect]
     Indication: HIV INFECTION

REACTIONS (2)
  - IMMUNE RECONSTITUTION SYNDROME [None]
  - PULMONARY TUBERCULOSIS [None]
